FAERS Safety Report 15097107 (Version 3)
Quarter: 2020Q1

REPORT INFORMATION
  Report Type: Report from Study
  Country: CA (occurrence: CA)
  Receive Date: 20180702
  Receipt Date: 20200117
  Transmission Date: 20200409
  Serious: Yes (Hospitalization, Other)
  Sender: FDA-Public Use
  Company Number: CA-GLAXOSMITHKLINE-CA2018GSK112321

PATIENT
  Sex: Male

DRUGS (2)
  1. MEPOLIZUMAB [Suspect]
     Active Substance: MEPOLIZUMAB
     Dosage: 100 MG, Z (MONOTHLY)
     Route: 042
  2. MEPOLIZUMAB [Suspect]
     Active Substance: MEPOLIZUMAB
     Indication: ASTHMA
     Dosage: 100 MG, Z (MONOTHLY)
     Route: 042
     Dates: start: 20170809

REACTIONS (5)
  - Cardiac failure congestive [Recovered/Resolved]
  - Hospitalisation [Unknown]
  - Peripheral swelling [Unknown]
  - Dyspnoea [Unknown]
  - Pulmonary mass [Unknown]
